FAERS Safety Report 8876949 (Version 1)
Quarter: 2012Q4

REPORT INFORMATION
  Report Type: 
  Country: GB (occurrence: GB)
  Receive Date: 20121030
  Receipt Date: 20121030
  Transmission Date: 20130627
  Serious: Yes (Death, Hospitalization)
  Sender: FDA-Public Use
  Company Number: GB-WATSON-2012-18290

PATIENT
  Age: 74 Year
  Sex: Female

DRUGS (4)
  1. PREDNISOLONE (UNKNOWN) [Suspect]
     Indication: RHEUMATOID ARTHRITIS
     Dosage: 5 mg, daily
     Route: 065
  2. PREDNISOLONE (UNKNOWN) [Suspect]
     Dosage: 20 mg, daily
     Route: 065
  3. ASPIRIN [Suspect]
     Indication: MYOCARDIAL INFARCTION
     Dosage: 75 mg, daily
     Route: 065
  4. METHOTREXATE [Suspect]
     Indication: RHEUMATOID ARTHRITIS
     Dosage: 15 mg, 1/week
     Route: 065

REACTIONS (1)
  - Gallbladder perforation [Recovered/Resolved]
